FAERS Safety Report 9987239 (Version 6)
Quarter: 2014Q3

REPORT INFORMATION
  Report Type: Spontaneous
  Country: US (occurrence: US)
  Receive Date: 20140307
  Receipt Date: 20140922
  Transmission Date: 20150326
  Serious: Yes (Other)
  Sender: FDA-Public Use
  Company Number: US-AMGEN-USASP2014009625

PATIENT
  Age: 34 Year
  Sex: Female
  Weight: 63.04 kg

DRUGS (9)
  1. INFLUENZA VACCINE [Concomitant]
     Active Substance: INFLUENZA VIRUS VACCINE
     Dosage: UNK
  2. PROBIOTICS                         /07325001/ [Concomitant]
     Indication: DYSPEPSIA
     Dosage: UNK UNK, QD
     Route: 048
     Dates: start: 20070101
  3. OVIDREL                            /01277601/ [Concomitant]
     Dosage: UNK
  4. ENBREL [Suspect]
     Active Substance: ETANERCEPT
     Indication: ANKYLOSING SPONDYLITIS
     Dosage: 50 MG, ONCE WEEKLY
     Route: 058
     Dates: start: 201009
  5. ENBREL [Suspect]
     Active Substance: ETANERCEPT
     Indication: ARTHRITIS
  6. IRON [Concomitant]
     Active Substance: IRON
     Indication: ANAEMIA
     Dosage: 27 MG, BID
     Route: 048
     Dates: start: 20131001
  7. PRENATAL VITAMINS                  /07499601/ [Concomitant]
     Indication: PREGNANCY
     Dosage: UNK UNK, QD
     Route: 048
     Dates: start: 20120101
  8. GONAL-F [Concomitant]
     Active Substance: FOLLITROPIN
     Dosage: UNK
  9. FOLIC ACID. [Concomitant]
     Active Substance: FOLIC ACID
     Dosage: UNK

REACTIONS (8)
  - Arthralgia [Recovered/Resolved]
  - Nasal congestion [Unknown]
  - Precipitate labour [Unknown]
  - Haemorrhage [Unknown]
  - Premature labour [Unknown]
  - Incorrect route of drug administration [Unknown]
  - Premature delivery [Unknown]
  - Back pain [Recovered/Resolved]

NARRATIVE: CASE EVENT DATE: 201309
